FAERS Safety Report 8819758 (Version 3)
Quarter: 2012Q4

REPORT INFORMATION
  Report Type: Report from Study
  Country: US (occurrence: US)
  Receive Date: 20121001
  Receipt Date: 20121105
  Transmission Date: 20130627
  Serious: Yes (Life-Threatening, Other)
  Sender: FDA-Public Use
  Company Number: US-US-EMD SERONO, INC.-7164517

PATIENT
  Age: 69 Year
  Sex: Female

DRUGS (2)
  1. REBIF [Suspect]
     Indication: PRODUCT USED FOR UNKNOWN INDICATION
     Route: 058
     Dates: start: 20061110
  2. STEROID [Suspect]
     Indication: PRODUCT USED FOR UNKNOWN INDICATION

REACTIONS (4)
  - Respiratory arrest [Recovered/Resolved]
  - Malignant melanoma in situ [Unknown]
  - Intervertebral disc protrusion [Not Recovered/Not Resolved]
  - VIIth nerve paralysis [Recovering/Resolving]
